FAERS Safety Report 9217938 (Version 4)
Quarter: 2013Q3

REPORT INFORMATION
  Report Type: Report from Study
  Country: JP (occurrence: JP)
  Receive Date: 20130408
  Receipt Date: 20130708
  Transmission Date: 20140515
  Serious: Yes (Hospitalization)
  Sender: FDA-Public Use
  Company Number: JP-ABBOTT-13X-087-1071361-00

PATIENT
  Age: 78 Year
  Sex: Female

DRUGS (5)
  1. LIPACREON [Suspect]
     Indication: PANCREATIC INSUFFICIENCY
     Dosage: SACHET
     Route: 048
     Dates: start: 20120713, end: 20120821
  2. LIPACREON [Suspect]
     Dates: start: 20121221
  3. RABEPRAZOLE SODIUM [Concomitant]
     Indication: PANCREATIC INSUFFICIENCY
     Dates: start: 20120906
  4. RABEPRAZOLE SODIUM [Concomitant]
     Indication: GASTRIC PH DECREASED
  5. ESOMEPRAZOLE MAGNESIUM [Concomitant]
     Indication: PANCREATIC INSUFFICIENCY
     Route: 048
     Dates: start: 20130118

REACTIONS (2)
  - Oedema [Recovering/Resolving]
  - Hypoalbuminaemia [Recovering/Resolving]
